FAERS Safety Report 4475334-5 (Version None)
Quarter: 2004Q4

REPORT INFORMATION
  Report Type: 
  Country: None (occurrence: None)
  Receive Date: 20041013
  Receipt Date: 20041013
  Transmission Date: 20050328
  Serious: Yes (Life-Threatening, Hospitalization, Other)
  Sender: FDA-Public Use
  Company Number: None

PATIENT
  Age: 53 Year
  Sex: Male
  Weight: 68.0396 kg

DRUGS (9)
  1. OMNIPAQUE 140 [Suspect]
     Indication: SCAN WITH CONTRAST
     Dosage: IV OTC
     Route: 042
     Dates: start: 20040624
  2. TYLENOL [Concomitant]
  3. DILAUDID [Concomitant]
  4. ATIVAN [Concomitant]
  5. ZOLPIDEM TARTRATE [Concomitant]
  6. TPN [Concomitant]
  7. LABETALOL [Concomitant]
  8. IMIPENEM [Concomitant]
  9. LIPOSYN [Concomitant]

REACTIONS (6)
  - BLOOD PRESSURE INCREASED [None]
  - COUGH [None]
  - DYSPNOEA [None]
  - HYPERHIDROSIS [None]
  - OXYGEN SATURATION DECREASED [None]
  - WHEEZING [None]
